FAERS Safety Report 7638247-3 (Version None)
Quarter: 2011Q3

REPORT INFORMATION
  Report Type: 
  Country: None (occurrence: None)
  Receive Date: 20110720
  Receipt Date: 20110707
  Transmission Date: 20111222
  Serious: Yes (Other)
  Sender: FDA-Public Use
  Company Number: DSA_47168_2011

PATIENT
  Sex: Male

DRUGS (3)
  1. BUPROPION HYDROCHLORIDE [Suspect]
     Indication: PRODUCT USED FOR UNKNOWN INDICATION
     Dosage: DF ORAL
     Route: 048
  2. VIAGRA [Suspect]
     Indication: ERECTILE DYSFUNCTION
     Dosage: 100 MG AS NEEDED ORAL
     Route: 048
     Dates: end: 20080101
  3. CIALIS [Suspect]
     Indication: PRODUCT USED FOR UNKNOWN INDICATION
     Dosage: DF

REACTIONS (9)
  - INTERVERTEBRAL DISC INJURY [None]
  - BACK CRUSHING [None]
  - SPINAL OSTEOARTHRITIS [None]
  - BACK INJURY [None]
  - WOUND HAEMORRHAGE [None]
  - ANGIOPATHY [None]
  - HEAD INJURY [None]
  - ROAD TRAFFIC ACCIDENT [None]
  - DRUG INEFFECTIVE [None]
